FAERS Safety Report 5986022-8 (Version None)
Quarter: 2008Q4

REPORT INFORMATION
  Report Type: 
  Country: None (occurrence: None)
  Receive Date: 20081209
  Receipt Date: 20081202
  Transmission Date: 20090506
  Serious: Yes (Death)
  Sender: FDA-Public Use
  Company Number: US-JNJFOC-20081000810

PATIENT
  Sex: Male
  Weight: 73.48 kg

DRUGS (2)
  1. TOPAMAX [Suspect]
     Indication: DRUG USE FOR UNKNOWN INDICATION
     Route: 048
  2. HEROIN [Suspect]
     Indication: DRUG USE FOR UNKNOWN INDICATION

REACTIONS (2)
  - COMPLETED SUICIDE [None]
  - OVERDOSE [None]
